FAERS Safety Report 13928350 (Version 3)
Quarter: 2017Q4

REPORT INFORMATION
  Report Type: Report from Study
  Country: US (occurrence: US)
  Receive Date: 20170901
  Receipt Date: 20171003
  Transmission Date: 20180320
  Serious: Yes (Life-Threatening, Hospitalization, Disabling, Other)
  Sender: FDA-Public Use
  Company Number: US-009507513-1708USA011977

PATIENT
  Age: 66 Year
  Sex: Female

DRUGS (1)
  1. KEYTRUDA [Suspect]
     Active Substance: PEMBROLIZUMAB
     Indication: VULVAL CANCER
     Dosage: UNK
     Route: 042
     Dates: start: 20170518, end: 20170724

REACTIONS (8)
  - Malignant neoplasm progression [Not Recovered/Not Resolved]
  - Vulvitis [Not Recovered/Not Resolved]
  - Delirium [Not Recovered/Not Resolved]
  - Product use in unapproved indication [Unknown]
  - Sepsis [Not Recovered/Not Resolved]
  - Hypercalcaemia [Not Recovered/Not Resolved]
  - Lymphoedema [Not Recovered/Not Resolved]
  - Pneumonia [Not Recovered/Not Resolved]

NARRATIVE: CASE EVENT DATE: 2017
